FAERS Safety Report 12787705 (Version 1)
Quarter: 2016Q3

REPORT INFORMATION
  Report Type: Spontaneous
  Country: US (occurrence: US)
  Receive Date: 20160927
  Receipt Date: 20160927
  Transmission Date: 20161109
  Serious: Yes (Disabling)
  Sender: FDA-Public Use
  Company Number: None

PATIENT
  Age: 44 Year
  Sex: Male
  Weight: 119.25 kg

DRUGS (6)
  1. CIPROFLOXACIN HC [Suspect]
     Active Substance: CIPROFLOXACIN HYDROCHLORIDE
     Indication: SINUSITIS
     Dosage: ?          QUANTITY:20 TABLET(S);?
     Route: 048
     Dates: start: 20120604, end: 20120614
  2. AZELASTINE [Concomitant]
     Active Substance: AZELASTINE
  3. ANTI FUNGAL OINTMENT [Concomitant]
  4. FLONASE [Suspect]
     Active Substance: FLUTICASONE PROPIONATE
  5. FLAGYL [Suspect]
     Active Substance: METRONIDAZOLE\METRONIDAZOLE HYDROCHLORIDE
  6. GUAIFENESIN XR [Suspect]
     Active Substance: GUAIFENESIN

REACTIONS (25)
  - Myalgia [None]
  - Epistaxis [None]
  - Ageusia [None]
  - Dementia [None]
  - Anxiety [None]
  - Asthenia [None]
  - Activities of daily living impaired [None]
  - Tongue disorder [None]
  - Rotator cuff syndrome [None]
  - Incorrect dose administered [None]
  - Tendon pain [None]
  - Pain [None]
  - Palpitations [None]
  - Fatigue [None]
  - Arthritis [None]
  - Malaise [None]
  - Burning sensation [None]
  - Anosmia [None]
  - Hallucination [None]
  - Arthralgia [None]
  - Gastrointestinal pain [None]
  - Diarrhoea [None]
  - Neuropathy peripheral [None]
  - Tongue discomfort [None]
  - Expired product administered [None]

NARRATIVE: CASE EVENT DATE: 20120614
